FAERS Safety Report 6038624-0 (Version None)
Quarter: 2009Q1

REPORT INFORMATION
  Report Type: 
  Country: None (occurrence: None)
  Receive Date: 20090114
  Receipt Date: 20090114
  Transmission Date: 20090719
  Serious: Yes (Death, Hospitalization)
  Sender: FDA-Public Use
  Company Number: None

PATIENT
  Sex: Male

DRUGS (6)
  1. REVLIMID [Suspect]
     Indication: ACUTE MYELOID LEUKAEMIA
     Dosage: 5 MG DAILY ORAL
     Route: 048
     Dates: start: 20081215, end: 20081221
  2. MELPHALAN [Concomitant]
  3. FLUCONAZOLE [Concomitant]
  4. INDOMETHACIN [Concomitant]
  5. GLYBURIDE [Concomitant]
  6. NOVOLIN [Concomitant]

REACTIONS (2)
  - PNEUMONIA [None]
  - THROMBOCYTOPENIA [None]
